FAERS Safety Report 13919023 (Version 3)
Quarter: 2017Q4

REPORT INFORMATION
  Report Type: Spontaneous
  Country: US (occurrence: US)
  Receive Date: 20170830
  Receipt Date: 20171012
  Transmission Date: 20180320
  Serious: Yes (Death, Other)
  Sender: FDA-Public Use
  Company Number: US-SAREPTA THERAPEUTICS, INC-SRP-000061-2017

PATIENT
  Sex: Male

DRUGS (3)
  1. EXONDYS 51 [Suspect]
     Active Substance: ETEPLIRSEN
     Dosage: UNK
     Route: 065
     Dates: start: 20161205
  2. EXONDYS 51 [Suspect]
     Active Substance: ETEPLIRSEN
     Indication: DUCHENNE MUSCULAR DYSTROPHY
     Dosage: 2100 MG, WEEKLY
     Route: 065
     Dates: start: 20161202, end: 201612
  3. EXONDYS 51 [Suspect]
     Active Substance: ETEPLIRSEN
     Dosage: UNK
     Route: 065
     Dates: start: 20161212

REACTIONS (3)
  - Cardiogenic shock [Fatal]
  - Post procedural complication [Fatal]
  - Atrioventricular block complete [Fatal]
